FAERS Safety Report 9980783 (Version 1)
Quarter: 2014Q1

REPORT INFORMATION
  Report Type: Spontaneous
  Country: US (occurrence: US)
  Receive Date: 20140307
  Receipt Date: 20140307
  Transmission Date: 20141002
  Serious: Yes (Other)
  Sender: FDA-Public Use
  Company Number: US-ACCORD-022310

PATIENT
  Age: 17 Year
  Sex: Female

DRUGS (1)
  1. METHOTREXATE [Suspect]
     Indication: MORPHOEA
     Dosage: METHOTREXATE RECEIVED OVER THE COURSE OF 19 MONTHS WITH TOTAL OF 34 EXCIMER TREATMENTS

REACTIONS (2)
  - Off label use [Unknown]
  - Parakeratosis [Unknown]
